FAERS Safety Report 17791483 (Version 1)
Quarter: 2020Q2

REPORT INFORMATION
  Report Type: Report from Study
  Country: None (occurrence: US)
  Receive Date: 20200515
  Receipt Date: 20200515
  Transmission Date: 20200714
  Serious: Yes (Other)
  Sender: FDA-Public Use
  Company Number: US-ABBVIE-20P-163-3403489-00

PATIENT
  Age: 65 Year
  Sex: Male

DRUGS (1)
  1. IMBRUVICA [Suspect]
     Active Substance: IBRUTINIB
     Indication: CHRONIC LYMPHOCYTIC LEUKAEMIA
     Route: 048
     Dates: start: 20180506

REACTIONS (5)
  - Knee operation [Unknown]
  - Meniscus injury [Unknown]
  - Memory impairment [Unknown]
  - Dementia [Unknown]
  - Cyst [Unknown]

NARRATIVE: CASE EVENT DATE: 20200505
